FAERS Safety Report 5857143-5 (Version None)
Quarter: 2008Q3

REPORT INFORMATION
  Report Type: 
  Country: None (occurrence: None)
  Receive Date: 20080821
  Receipt Date: 20080807
  Transmission Date: 20090109
  Serious: Yes (Other)
  Sender: FDA-Public Use
  Company Number: 2008BI020414

PATIENT
  Age: 67 Year
  Sex: Female

DRUGS (2)
  1. TYSABRI [Suspect]
     Indication: RELAPSING-REMITTING MULTIPLE SCLEROSIS
     Dosage: 300 MG; QM; IV
     Route: 042
     Dates: start: 20060914, end: 20080401
  2. AVONEX [Concomitant]

REACTIONS (3)
  - ADENOCARCINOMA [None]
  - IRON DEFICIENCY [None]
  - PANCREATIC CARCINOMA METASTATIC [None]
